FAERS Safety Report 5523465-0 (Version None)
Quarter: 2007Q4

REPORT INFORMATION
  Report Type: 
  Country: None (occurrence: None)
  Receive Date: 20071121
  Receipt Date: 20071114
  Transmission Date: 20080405
  Serious: Yes (Hospitalization)
  Sender: FDA-Public Use
  Company Number: GB-ABBOTT-07P-167-0424826-00

PATIENT
  Age: 48 Year
  Sex: Female
  Weight: 102.2 kg

DRUGS (3)
  1. REDUCTIL 10MG [Suspect]
     Indication: WEIGHT CONTROL
     Dates: start: 20070709, end: 20070827
  2. ALBUTEROL [Concomitant]
     Indication: ASTHMA
  3. BECLOMETHASONE DIPROPIONATE [Concomitant]
     Indication: ASTHMA

REACTIONS (1)
  - ASTHMA [None]
